FAERS Safety Report 11220533 (Version 2)
Quarter: 2015Q2

REPORT INFORMATION
  Report Type: Spontaneous
  Country: CA (occurrence: CA)
  Receive Date: 20150626
  Receipt Date: 20150630
  Transmission Date: 20150821
  Serious: No
  Sender: FDA-Public Use
  Company Number: CA-ROCHE-1597297

PATIENT
  Age: 53 Year
  Sex: Male

DRUGS (6)
  1. PREDNISONE. [Concomitant]
     Active Substance: PREDNISONE
  2. ONBREZ BREEZHALER [Suspect]
     Active Substance: INDACATEROL
     Indication: PRODUCT USED FOR UNKNOWN INDICATION
     Dosage: TREATMENT TO BE HELD OFF FOR 1 MONTH (UNKNOWN DATES)
     Route: 055
  3. QVAR [Concomitant]
     Active Substance: BECLOMETHASONE DIPROPIONATE
  4. XOLAIR [Suspect]
     Active Substance: OMALIZUMAB
     Indication: ASTHMA
     Route: 058
     Dates: start: 20150507
  5. XOLAIR [Suspect]
     Active Substance: OMALIZUMAB
     Dosage: TREATMENT TO BE HELD OFF FOR 1 MONTH (UNKNOWN DATES)
     Route: 058
     Dates: start: 20150604
  6. XOLAIR [Suspect]
     Active Substance: OMALIZUMAB
     Route: 058
     Dates: start: 20150521

REACTIONS (3)
  - Blood pressure decreased [Unknown]
  - Dyspnoea [Unknown]
  - Headache [Not Recovered/Not Resolved]

NARRATIVE: CASE EVENT DATE: 20150507
